FAERS Safety Report 10163264 (Version 1)
Quarter: 2014Q2

REPORT INFORMATION
  Report Type: Spontaneous
  Country: TW (occurrence: TW)
  Receive Date: 20140509
  Receipt Date: 20140509
  Transmission Date: 20141212
  Serious: Yes (Hospitalization)
  Sender: FDA-Public Use
  Company Number: TW-BAYER-2014-062951

PATIENT
  Age: 73 Year
  Sex: Female
  Weight: 65.8 kg

DRUGS (9)
  1. GLUCOBAY [Suspect]
     Dosage: UNK
     Dates: start: 20140303
  2. BISOPROLOL [Suspect]
  3. FUROSEMIDE [Suspect]
  4. ATORVASTATIN [Suspect]
  5. JANUMET [Suspect]
     Dosage: UNK
     Dates: start: 201307
  6. DIGOXIN [Suspect]
  7. CANDESARTAN [Suspect]
  8. AMARYL M [Suspect]
  9. DABIGATRAN [Suspect]
     Dosage: UNK
     Dates: start: 201212

REACTIONS (3)
  - Hypersensitivity vasculitis [None]
  - Rash papular [None]
  - Purpura [None]
